FAERS Safety Report 25853386 (Version 6)
Quarter: 2025Q4

REPORT INFORMATION
  Report Type: Spontaneous
  Country: US (occurrence: US)
  Receive Date: 20250926
  Receipt Date: 20251104
  Transmission Date: 20260118
  Serious: Yes (Hospitalization, Other)
  Sender: Kenvue
  Company Number: US-KENVUE-20250914236

PATIENT
  Sex: Female

DRUGS (7)
  1. AVOBENZONE\HOMOSALATE\OCTISALATE\OCTOCRYLENE\OXYBENZONE [Suspect]
     Active Substance: AVOBENZONE\HOMOSALATE\OCTISALATE\OCTOCRYLENE\OXYBENZONE
     Indication: Product used for unknown indication
     Dosage: APPLIED LIBERALLY, EVERYDAY USING FROM MANY YEARS
     Route: 061
  2. COSMETICS [Suspect]
     Active Substance: COSMETICS
     Indication: Removal of inert matter from skin or subcutaneous tissue
     Dosage: EVERYDAY, USING FOR MANY YEARS
     Route: 061
  3. COSMETICS [Suspect]
     Active Substance: COSMETICS
     Indication: Product used for unknown indication
     Dosage: APPLIED LIBERALLY, EVERYDAY/DAILY USING FROM SEVERAL YEARS
     Route: 061
  4. TITANIUM DIOXIDE [Suspect]
     Active Substance: TITANIUM DIOXIDE
     Indication: Product used for unknown indication
     Dosage: APPLIED LIBERALLY, EVERYDAY USING FROM MANY YEARS
     Route: 061
  5. COSMETICS [Suspect]
     Active Substance: COSMETICS
     Indication: Product used for unknown indication
     Dosage: APPLIED LIBERALLY, EVERYDAY/DAILY USING FROM MANY YEARS
     Route: 061
  6. COSMETICS [Suspect]
     Active Substance: COSMETICS
     Indication: Product used for unknown indication
     Dosage: APPLIED LIBERALLY, EVERYDAY USING FROM MANY YEARS
     Route: 061
  7. NEUTROGENA SKINCLEARING OIL FREE MAKEUP - TAN 120 [Suspect]
     Active Substance: SALICYLIC ACID
     Indication: Product used for unknown indication
     Dosage: APPLIED LIBERALLY, EVERYDAY
     Route: 061

REACTIONS (1)
  - Neoplasm malignant [Not Recovered/Not Resolved]

NARRATIVE: CASE EVENT DATE: 20100101
